FAERS Safety Report 12194158 (Version 1)
Quarter: 2016Q1

REPORT INFORMATION
  Report Type: Spontaneous
  Country: FR (occurrence: FR)
  Receive Date: 20160321
  Receipt Date: 20160321
  Transmission Date: 20160526
  Serious: Yes (Hospitalization)
  Sender: FDA-Public Use
  Company Number: PHHY2016FR034329

PATIENT
  Age: 43 Year
  Sex: Male

DRUGS (6)
  1. ZYKADIA [Suspect]
     Active Substance: CERITINIB
     Dosage: 600 MG, QD
     Route: 065
     Dates: start: 20160120, end: 20160125
  2. IMODIUM [Concomitant]
     Active Substance: LOPERAMIDE HYDROCHLORIDE
     Indication: PRODUCT USED FOR UNKNOWN INDICATION
     Route: 065
  3. PRIMPERAN [Concomitant]
     Active Substance: METOCLOPRAMIDE HYDROCHLORIDE
     Indication: PRODUCT USED FOR UNKNOWN INDICATION
     Route: 065
  4. ZYKADIA [Suspect]
     Active Substance: CERITINIB
     Indication: PRODUCT USED FOR UNKNOWN INDICATION
     Dosage: 450 MG, QD
     Route: 065
     Dates: start: 20160115, end: 20160120
  5. ZYKADIA [Suspect]
     Active Substance: CERITINIB
     Dosage: 750 MG, QD
     Route: 065
     Dates: start: 20160125, end: 20160129
  6. ZYKADIA [Suspect]
     Active Substance: CERITINIB
     Dosage: 600 MG, QD
     Route: 065
     Dates: start: 20160129, end: 20160204

REACTIONS (1)
  - Urticarial vasculitis [Recovering/Resolving]

NARRATIVE: CASE EVENT DATE: 20160129
